FAERS Safety Report 7198356-2 (Version None)
Quarter: 2010Q4

REPORT INFORMATION
  Report Type: 
  Country: None (occurrence: None)
  Receive Date: 20101227
  Receipt Date: 20101217
  Transmission Date: 20110411
  Serious: No
  Sender: FDA-Public Use
  Company Number: US-JNJFOC-20101206664

PATIENT
  Sex: Male
  Weight: 113.4 kg

DRUGS (4)
  1. DURAGESIC-50 [Suspect]
     Indication: INTERVERTEBRAL DISC PROTRUSION
     Route: 062
  2. VICODIN [Concomitant]
     Indication: BACK PAIN
     Route: 048
  3. CALCIUM [Concomitant]
     Indication: BONE DISORDER
     Route: 048
  4. TRICOR [Concomitant]
     Indication: BLOOD CHOLESTEROL
     Route: 048

REACTIONS (2)
  - DRUG DOSE OMISSION [None]
  - PRODUCT QUALITY ISSUE [None]
